FAERS Safety Report 11904702 (Version 1)
Quarter: 2016Q1

REPORT INFORMATION
  Report Type: Spontaneous
  Country: US (occurrence: US)
  Receive Date: 20160108
  Receipt Date: 20160108
  Transmission Date: 20160526
  Serious: Yes (Other)
  Sender: FDA-Public Use
  Company Number: US-ROCHE-1639665

PATIENT
  Sex: Male

DRUGS (2)
  1. RITUXAN [Suspect]
     Active Substance: RITUXIMAB
     Indication: INTERSTITIAL LUNG DISEASE
  2. RITUXAN [Suspect]
     Active Substance: RITUXIMAB
     Indication: POLYMYOSITIS
     Dosage: FOR 4 WEEKS, STOPPED FOR 6 MONTHS, RESUMED AGAIN
     Route: 065

REACTIONS (2)
  - Arthralgia [Not Recovered/Not Resolved]
  - Myalgia [Not Recovered/Not Resolved]
